FAERS Safety Report 18265247 (Version 3)
Quarter: 2021Q1

REPORT INFORMATION
  Report Type: Report from Study
  Country: None (occurrence: US)
  Receive Date: 20200915
  Receipt Date: 20210324
  Transmission Date: 20210419
  Serious: Yes (Hospitalization, Other)
  Sender: FDA-Public Use
  Company Number: US-ABBVIE-20K-163-3388763-00

PATIENT
  Sex: Female

DRUGS (1)
  1. HUMIRA [Suspect]
     Active Substance: ADALIMUMAB
     Indication: CROHN^S DISEASE
     Route: 058
     Dates: start: 20200228

REACTIONS (17)
  - Epistaxis [Recovered/Resolved]
  - Weight decreased [Recovered/Resolved]
  - Epistaxis [Recovered/Resolved]
  - Coronary artery occlusion [Unknown]
  - Blood glucose increased [Unknown]
  - Headache [Recovered/Resolved]
  - Weight decreased [Unknown]
  - Insomnia [Unknown]
  - Abdominal pain [Recovered/Resolved]
  - Fungal infection [Recovered/Resolved]
  - Diarrhoea [Recovered/Resolved]
  - Tooth extraction [Unknown]
  - Constipation [Not Recovered/Not Resolved]
  - Axillary mass [Unknown]
  - Decreased appetite [Unknown]
  - Nausea [Recovered/Resolved]
  - COVID-19 [Unknown]

NARRATIVE: CASE EVENT DATE: 2020
